FAERS Safety Report 9856090 (Version 1)
Quarter: 2014Q1

REPORT INFORMATION
  Report Type: Spontaneous
  Country: US (occurrence: US)
  Receive Date: 20140130
  Receipt Date: 20140130
  Transmission Date: 20141002
  Serious: Yes (Other)
  Sender: FDA-Public Use
  Company Number: PHEH2014US001911

PATIENT
  Sex: Male

DRUGS (2)
  1. GLEEVEC [Suspect]
     Indication: CHRONIC MYELOID LEUKAEMIA
     Dosage: UNK UKN, UNK
  2. ENSURE [Concomitant]
     Dosage: UNK UKN, UNK

REACTIONS (3)
  - Dementia Alzheimer^s type [Unknown]
  - Dysphagia [Unknown]
  - Hypophagia [Unknown]
